FAERS Safety Report 21322748 (Version 15)
Quarter: 2023Q2

REPORT INFORMATION
  Report Type: Report from Study
  Country: US (occurrence: US)
  Receive Date: 20220912
  Receipt Date: 20230608
  Transmission Date: 20230721
  Serious: No
  Sender: FDA-Public Use
  Company Number: US-NOVARTISTESTPH-NVSC2022US204972

PATIENT
  Sex: Female

DRUGS (5)
  1. COSENTYX [Suspect]
     Active Substance: SECUKINUMAB
     Indication: Psoriatic arthropathy
     Dosage: UNK
     Route: 058
  2. OMEPRAZOLE [Concomitant]
     Active Substance: OMEPRAZOLE
     Indication: Gastrooesophageal reflux disease
     Dosage: UNK
     Route: 065
  3. PEPTO-BISMOL [Concomitant]
     Active Substance: BISMUTH SUBSALICYLATE
     Indication: Gastrooesophageal reflux disease
     Dosage: UNK
     Route: 065
  4. TYLENOL [Concomitant]
     Active Substance: ACETAMINOPHEN
     Indication: Product used for unknown indication
     Route: 065
  5. IBUPROFEN [Concomitant]
     Active Substance: IBUPROFEN
     Indication: Product used for unknown indication
     Route: 065

REACTIONS (23)
  - Plicated tongue [Unknown]
  - Malaise [Unknown]
  - Condition aggravated [Unknown]
  - Movement disorder [Unknown]
  - Feeling abnormal [Unknown]
  - Rhinalgia [Unknown]
  - COVID-19 [Unknown]
  - Concomitant disease aggravated [Unknown]
  - Tooth erosion [Unknown]
  - Injection site bruising [Unknown]
  - Pain in extremity [Unknown]
  - Irritability [Unknown]
  - Hyperhidrosis [Unknown]
  - Feeling hot [Unknown]
  - Headache [Unknown]
  - Arthralgia [Unknown]
  - Psoriasis [Unknown]
  - Skin plaque [Unknown]
  - Erythema [Unknown]
  - Skin exfoliation [Unknown]
  - Drug ineffective [Unknown]
  - Groin pain [Unknown]
  - Pain [Unknown]
